FAERS Safety Report 20557787 (Version 2)
Quarter: 2022Q1

REPORT INFORMATION
  Report Type: Spontaneous
  Country: US (occurrence: US)
  Receive Date: 20220307
  Receipt Date: 20220311
  Transmission Date: 20220424
  Serious: Yes (Death, Other)
  Sender: FDA-Public Use
  Company Number: US-BAXTER-2022BAX004636

PATIENT
  Sex: Male

DRUGS (2)
  1. PRISMASOL BGK4/2.5 [Suspect]
     Active Substance: ANHYDROUS DEXTROSE\CALCIUM CHLORIDE\LACTIC ACID\MAGNESIUM CHLORIDE\POTASSIUM CHLORIDE\SODIUM BICARBO
     Indication: Acute kidney injury
     Dosage: VIA CRRT (CONTINUOUS RENAL REPLACEMENT THERAPY)
     Route: 042
     Dates: start: 20220224
  2. PRISMASOL BGK4/2.5 [Suspect]
     Active Substance: ANHYDROUS DEXTROSE\CALCIUM CHLORIDE\LACTIC ACID\MAGNESIUM CHLORIDE\POTASSIUM CHLORIDE\SODIUM BICARBO
     Indication: Metabolic acidosis

REACTIONS (3)
  - Death [Fatal]
  - Cardio-respiratory arrest [Unknown]
  - Product administration error [Unknown]

NARRATIVE: CASE EVENT DATE: 20220201
